FAERS Safety Report 7435094-2 (Version None)
Quarter: 2011Q2

REPORT INFORMATION
  Report Type: 
  Country: None (occurrence: None)
  Receive Date: 20110425
  Receipt Date: 20110415
  Transmission Date: 20111010
  Serious: Yes (Other)
  Sender: FDA-Public Use
  Company Number: PHHY2011BR32403

PATIENT
  Sex: Female
  Weight: 64 kg

DRUGS (1)
  1. COMBIPATCH [Suspect]
     Indication: HORMONE REPLACEMENT THERAPY
     Dosage: 50/140 MCG, 1 PATCH TWICE A WEEK (ON MONDAY AND ON THURSDAY)
     Route: 062
     Dates: start: 20100801

REACTIONS (9)
  - ERYTHEMA [None]
  - APPLICATION SITE IRRITATION [None]
  - APPLICATION SITE PRURITUS [None]
  - GROIN PAIN [None]
  - ABDOMINAL PAIN [None]
  - APPLICATION SITE ERYTHEMA [None]
  - WRONG TECHNIQUE IN DRUG USAGE PROCESS [None]
  - RENAL PAIN [None]
  - VAGINAL HAEMORRHAGE [None]
